FAERS Safety Report 5313545-7 (Version None)
Quarter: 2007Q2

REPORT INFORMATION
  Report Type: 
  Country: None (occurrence: None)
  Receive Date: 20070501
  Receipt Date: 20060925
  Transmission Date: 20071010
  Serious: No
  Sender: FDA-Public Use
  Company Number: 2006UW18625

PATIENT
  Age: 74 Year
  Sex: Female
  Weight: 40.8 kg

DRUGS (3)
  1. ENTOCORT EC [Suspect]
     Indication: COLITIS ULCERATIVE
     Route: 048
     Dates: start: 20060501
  2. OTC PAIN MEDICATION [Concomitant]
  3. PAXIL [Concomitant]

REACTIONS (3)
  - DECREASED APPETITE [None]
  - DIZZINESS [None]
  - NAUSEA [None]
